FAERS Safety Report 19573187 (Version 1)
Quarter: 2021Q3

REPORT INFORMATION
  Report Type: Report from Study
  Country: US (occurrence: US)
  Receive Date: 20210716
  Receipt Date: 20210716
  Transmission Date: 20211014
  Serious: Yes (Hospitalization)
  Sender: FDA-Public Use
  Company Number: US-BAXTER-2021BAX020531

PATIENT
  Sex: Female
  Weight: 120.6 kg

DRUGS (21)
  1. DOXIL [Suspect]
     Active Substance: DOXORUBICIN HYDROCHLORIDE
     Dosage: 2ND?5TH COURSE
     Route: 065
  2. CYTARABINE. [Suspect]
     Active Substance: CYTARABINE
     Dosage: 2ND?5TH COURSE
     Route: 065
  3. METHOTREXATE SODIUM. [Suspect]
     Active Substance: METHOTREXATE SODIUM
     Dosage: 2ND?5TH COURSE
     Route: 065
  4. ONCASPAR [Suspect]
     Active Substance: PEGASPARGASE
     Dosage: 2ND?5TH COURSE
     Route: 065
  5. CYCLOPHOSPHAMIDE FOR INJECTION, USP [Suspect]
     Active Substance: CYCLOPHOSPHAMIDE
     Dosage: 2ND?5TH COURSE
     Route: 065
  6. RITUXIMAB. [Suspect]
     Active Substance: RITUXIMAB
     Dosage: 6TH COURSE, TOTAL DOSE ADMINISTERED THIS COURSE (DOSE): 1755 MG
     Route: 065
     Dates: start: 20200109, end: 20200116
  7. ONCASPAR [Suspect]
     Active Substance: PEGASPARGASE
     Indication: PRODUCT USED FOR UNKNOWN INDICATION
     Dosage: 1ST COURSE
     Route: 065
     Dates: start: 20190509
  8. ONCASPAR [Suspect]
     Active Substance: PEGASPARGASE
     Dosage: 6TH COURSE, TOTAL DOSE ADMINISTERED THIS COURSE (DOSE): 3750 IU
     Route: 065
     Dates: start: 20200114, end: 20200305
  9. RITUXIMAB. [Suspect]
     Active Substance: RITUXIMAB
     Dosage: 2ND?5TH COURSE
     Route: 065
  10. RITUXIMAB. [Suspect]
     Active Substance: RITUXIMAB
     Indication: PRODUCT USED FOR UNKNOWN INDICATION
     Dosage: 1ST COURSE
     Route: 065
     Dates: start: 20190509
  11. CYCLOPHOSPHAMIDE FOR INJECTION, USP [Suspect]
     Active Substance: CYCLOPHOSPHAMIDE
     Indication: PRODUCT USED FOR UNKNOWN INDICATION
     Dosage: 1ST COURSE
     Route: 065
     Dates: start: 20190509
  12. CYTARABINE. [Suspect]
     Active Substance: CYTARABINE
     Dosage: 6TH COURSE, TOTAL DOSE ADMINISTERED THIS COURSE (DOSE): 1404 MG
     Route: 065
     Dates: start: 20200210, end: 20200220
  13. VINCRISTINE SULFATE. [Suspect]
     Active Substance: VINCRISTINE SULFATE
     Indication: PRODUCT USED FOR UNKNOWN INDICATION
     Dosage: 1ST COURSE
     Route: 065
     Dates: start: 20190509
  14. METHOTREXATE SODIUM. [Suspect]
     Active Substance: METHOTREXATE SODIUM
     Indication: PRODUCT USED FOR UNKNOWN INDICATION
     Dosage: 1ST COURSE
     Route: 065
     Dates: start: 20190509
  15. DOXIL [Suspect]
     Active Substance: DOXORUBICIN HYDROCHLORIDE
     Dosage: 6TH COURSE, TOTAL DOSE ADMINISTERED THIS COURSE (DOSE): 175.5 MG
     Route: 065
     Dates: start: 20200109, end: 20200123
  16. CYCLOPHOSPHAMIDE FOR INJECTION, USP [Suspect]
     Active Substance: CYCLOPHOSPHAMIDE
     Dosage: 6TH COURSE, TOTAL DOSE ADMINISTERED THIS COURSE (DOSE): 2300 MG
     Route: 065
     Dates: start: 20200210, end: 20200210
  17. VINCRISTINE SULFATE. [Suspect]
     Active Substance: VINCRISTINE SULFATE
     Dosage: 2ND?5TH COURSE
     Route: 065
  18. DOXIL [Suspect]
     Active Substance: DOXORUBICIN HYDROCHLORIDE
     Indication: PRODUCT USED FOR UNKNOWN INDICATION
     Dosage: 1ST COURSE
     Route: 065
     Dates: start: 20190509
  19. CYTARABINE. [Suspect]
     Active Substance: CYTARABINE
     Indication: PRODUCT USED FOR UNKNOWN INDICATION
     Dosage: 1ST COURSE
     Route: 065
     Dates: start: 20190509
  20. VINCRISTINE SULFATE. [Suspect]
     Active Substance: VINCRISTINE SULFATE
     Dosage: 6TH COURSE, TOTAL DOSE ADMINISTERED THIS COURSE (DOSE): 10 MG
     Route: 065
     Dates: start: 20200109, end: 20200312
  21. METHOTREXATE SODIUM. [Suspect]
     Active Substance: METHOTREXATE SODIUM
     Dosage: 6TH COURSE, TOTAL DOSE ADMINISTERED THIS COURSE (DOSE): 45 MG
     Route: 065
     Dates: start: 20200109, end: 20200217

REACTIONS (1)
  - Febrile neutropenia [Recovered/Resolved with Sequelae]

NARRATIVE: CASE EVENT DATE: 20200222
